FAERS Safety Report 11177495 (Version 1)
Quarter: 2015Q2

REPORT INFORMATION
  Report Type: Spontaneous
  Country: GB (occurrence: GB)
  Receive Date: 20150610
  Receipt Date: 20150610
  Transmission Date: 20150821
  Serious: Yes (Other)
  Sender: FDA-Public Use
  Company Number: GB-WATSON-2015-11139

PATIENT
  Sex: Female

DRUGS (1)
  1. LOSARTAN (UNKNOWN) [Suspect]
     Active Substance: LOSARTAN
     Indication: HYPERTENSION
     Dosage: 50 MG, DAILY
     Route: 065

REACTIONS (7)
  - Dizziness [Recovered/Resolved]
  - Pallor [Recovered/Resolved]
  - Hyperhidrosis [Recovered/Resolved]
  - Blood pressure decreased [Recovered/Resolved]
  - Anaemia [Recovered/Resolved]
  - Swelling face [Recovered/Resolved]
  - Anaphylactic shock [Recovered/Resolved]
